FAERS Safety Report 17083858 (Version 1)
Quarter: 2019Q4

REPORT INFORMATION
  Report Type: Spontaneous
  Country: IN (occurrence: IN)
  Receive Date: 20191127
  Receipt Date: 20191127
  Transmission Date: 20200122
  Serious: Yes (Death, Other)
  Sender: FDA-Public Use
  Company Number: NVSC2019IN045451

PATIENT
  Age: 45 Year
  Sex: Male

DRUGS (3)
  1. ISONIAZID. [Suspect]
     Active Substance: ISONIAZID
     Indication: PULMONARY TUBERCULOSIS
     Dosage: UNK
     Route: 065
  2. DACLATASVIR. [Suspect]
     Active Substance: DACLATASVIR
     Indication: HEPATITIS C
     Dosage: 60 MG, QD
     Route: 065
  3. SOFOSBUVIR [Suspect]
     Active Substance: SOFOSBUVIR
     Indication: HEPATITIS C
     Dosage: 400 MG (ALTERNATE DAY)
     Route: 065

REACTIONS (7)
  - Paraesthesia [Fatal]
  - Gait inability [Fatal]
  - Pneumonitis [Fatal]
  - Hypoaesthesia [Fatal]
  - Muscular weakness [Fatal]
  - Sepsis [Fatal]
  - Guillain-Barre syndrome [Fatal]
